FAERS Safety Report 8831122 (Version 2)
Quarter: 2013Q3

REPORT INFORMATION
  Report Type: Spontaneous
  Country: US (occurrence: US)
  Receive Date: 20121008
  Receipt Date: 20130924
  Transmission Date: 20140515
  Serious: No
  Sender: FDA-Public Use
  Company Number: US-009507513-1209USA001889

PATIENT
  Sex: Male
  Weight: 140.59 kg

DRUGS (3)
  1. PEGINTRON [Suspect]
     Indication: HEPATITIS C
     Dosage: UNK
     Dates: start: 20120831
  2. PEGINTRON [Suspect]
     Dosage: UNK
     Dates: start: 20120831
  3. REBETOL [Suspect]
     Indication: HEPATITIS C
     Dosage: UNK
     Dates: start: 20120831

REACTIONS (3)
  - Back pain [Unknown]
  - Headache [Unknown]
  - Sleep disorder [Unknown]
